FAERS Safety Report 18061128 (Version 3)
Quarter: 2025Q1

REPORT INFORMATION
  Report Type: Report from Study
  Country: FI (occurrence: FI)
  Receive Date: 20200723
  Receipt Date: 20250211
  Transmission Date: 20250409
  Serious: Yes (Hospitalization, Other)
  Sender: MYLAN
  Company Number: FI-MYLANLABS-2020M1066436

PATIENT
  Age: 50 Year
  Sex: Female

DRUGS (12)
  1. CLOZAPINE [Suspect]
     Active Substance: CLOZAPINE
     Indication: Schizophrenia
     Dosage: 150 MILLIGRAM, QD
     Route: 048
     Dates: start: 20200601, end: 20200820
  2. PANTOPRAZOLE SODIUM [Concomitant]
     Active Substance: PANTOPRAZOLE SODIUM
     Dosage: 40 MILLIGRAM, QD (1 DOSE, ONCE PER DAY)
     Route: 065
  3. Agiocur [Concomitant]
     Route: 065
  4. POLYETHYLENE GLYCOL 4000 [Concomitant]
     Active Substance: POLYETHYLENE GLYCOL 4000
     Indication: Constipation
     Dosage: 1 DOSE PER DAY, IN THE EVENING
     Route: 065
  5. BISOPROLOL FUMARATE [Concomitant]
     Active Substance: BISOPROLOL FUMARATE
     Dosage: HALF A DOSE, QD
     Route: 065
  6. ATORVASTATIN [Concomitant]
     Active Substance: ATORVASTATIN
     Dosage: 40 MILLIGRAM, QD (1 DOSE, ONCE PER DAY)
     Route: 065
  7. TERBINAFINE HYDROCHLORIDE [Concomitant]
     Active Substance: TERBINAFINE HYDROCHLORIDE
     Indication: Onychomycosis
     Dosage: 250 MILLIGRAM, QD (1 DOSE, ONCE PER DAY)
     Route: 065
  8. CEPHALEXIN [Concomitant]
     Active Substance: CEPHALEXIN
     Dosage: 500 MILLIGRAM, TID (1 DOSE, THREE TIMES PER DAY)
     Route: 065
  9. IBUPROFEN [Concomitant]
     Active Substance: IBUPROFEN
     Route: 065
  10. Panadol forte [Concomitant]
     Indication: Pain
     Route: 065
  11. PERPHENAZINE [Concomitant]
     Active Substance: PERPHENAZINE
     Indication: Schizophrenia
     Dosage: 0.5+0+1 DOSES, PER DAY
     Route: 065
  12. PANTOPRAZOLE [Concomitant]
     Active Substance: PANTOPRAZOLE
     Indication: Dyspepsia
     Dosage: 40 MILLIGRAM, QD
     Route: 048

REACTIONS (12)
  - Pyelonephritis [Recovering/Resolving]
  - White blood cell count increased [Recovering/Resolving]
  - Neutrophil count increased [Recovering/Resolving]
  - Myocarditis [Recovered/Resolved]
  - Electrocardiogram ST segment elevation [Recovered/Resolved]
  - Electrocardiogram T wave inversion [Not Recovered/Not Resolved]
  - Troponin T increased [Recovered/Resolved]
  - C-reactive protein increased [Recovered/Resolved]
  - Infection [Recovered/Resolved]
  - Eosinophilia [Recovered/Resolved]
  - Chest pain [Unknown]
  - Dyspnoea [Unknown]

NARRATIVE: CASE EVENT DATE: 20200101
